FAERS Safety Report 11369284 (Version 1)
Quarter: 2015Q3

REPORT INFORMATION
  Report Type: Spontaneous
  Country: US (occurrence: US)
  Receive Date: 20150812
  Receipt Date: 20150812
  Transmission Date: 20151125
  Serious: No
  Sender: FDA-Public Use
  Company Number: US-JNJFOC-20150714712

PATIENT
  Age: 50 Year
  Sex: Male
  Weight: 86.18 kg

DRUGS (4)
  1. CRESTOR [Concomitant]
     Active Substance: ROSUVASTATIN CALCIUM
     Indication: BLOOD CHOLESTEROL
     Route: 048
  2. AVODART [Concomitant]
     Active Substance: DUTASTERIDE
     Indication: CYSTITIS NONINFECTIVE
     Route: 048
     Dates: start: 2013
  3. CIALIS [Concomitant]
     Active Substance: TADALAFIL
     Indication: CYSTITIS NONINFECTIVE
     Route: 048
     Dates: start: 201506
  4. STELARA [Suspect]
     Active Substance: USTEKINUMAB
     Indication: PSORIASIS
     Route: 058
     Dates: start: 201507

REACTIONS (3)
  - Palpitations [Recovered/Resolved]
  - Drug ineffective [Unknown]
  - Nervousness [Recovered/Resolved]

NARRATIVE: CASE EVENT DATE: 201507
